FAERS Safety Report 8406475 (Version 4)
Quarter: 2013Q2

REPORT INFORMATION
  Report Type: Report from Study
  Country: CA (occurrence: CA)
  Receive Date: 20120215
  Receipt Date: 20130409
  Transmission Date: 20140414
  Serious: Yes (Death, Hospitalization)
  Sender: FDA-Public Use
  Company Number: CA-CELGENEUS-028-C5013-11043771

PATIENT
  Age: 70 Year
  Sex: Male
  Weight: 83.1 kg

DRUGS (22)
  1. CC-5013\PLACEBO [Suspect]
     Indication: MYELODYSPLASTIC SYNDROME
     Dosage: 10 MILLIGRAM
     Route: 048
     Dates: start: 20110224, end: 20110420
  2. DEFEROXAMINE [Concomitant]
     Indication: ANAEMIA
     Dosage: 500 MILLIGRAM
     Route: 030
     Dates: start: 201104
  3. DEFEROXAMINE [Concomitant]
     Dosage: 500 MILLIGRAM
     Route: 041
     Dates: start: 20110430, end: 20110430
  4. PIPTAZONE [Concomitant]
     Indication: PRODUCT USED FOR UNKNOWN INDICATION
     Dosage: 2.25 GRAM
     Route: 041
     Dates: start: 201104
  5. CLOXACILLIN [Concomitant]
     Indication: PRODUCT USED FOR UNKNOWN INDICATION
     Route: 041
  6. HEPARIN [Concomitant]
     Indication: ANTICOAGULANT THERAPY
     Dosage: 5000 UNITS
     Route: 058
     Dates: start: 201104
  7. VITAMIN K [Concomitant]
     Indication: PRODUCT USED FOR UNKNOWN INDICATION
     Dosage: 10 MILLIGRAM
     Route: 048
     Dates: start: 201104
  8. DIGOXIN [Concomitant]
     Indication: CARDIAC FAILURE CONGESTIVE
     Dosage: .625 MILLIGRAM
     Route: 041
     Dates: start: 20110422
  9. DIGOXIN [Concomitant]
     Indication: ATRIAL FIBRILLATION
  10. VANCOMYCIN [Concomitant]
     Indication: PRODUCT USED FOR UNKNOWN INDICATION
     Dosage: 1 GRAM
     Route: 041
     Dates: start: 201104
  11. VANCOMYCIN [Concomitant]
     Dosage: 500 MILLIGRAM
     Route: 041
     Dates: start: 201104
  12. ROCALTROL [Concomitant]
     Indication: SUPPLEMENTATION THERAPY
     Dosage: .25 MILLIGRAM
     Route: 048
     Dates: start: 201104
  13. SENOKOT [Concomitant]
     Indication: CONSTIPATION
     Dosage: 2 TABLET
     Route: 048
     Dates: start: 201104
  14. TYLENOL [Concomitant]
     Indication: PAIN
     Dosage: 650 MILLIGRAM
     Route: 048
     Dates: start: 201104
  15. TYLENOL #3 [Concomitant]
     Indication: PAIN
     Dosage: 1-2 TABS
     Route: 048
     Dates: start: 20110422
  16. MORPHINE [Concomitant]
     Indication: PRODUCT USED FOR UNKNOWN INDICATION
     Dosage: 2.5-5MG
     Route: 041
     Dates: start: 20110423, end: 20110429
  17. DIOVOL [Concomitant]
     Indication: PRODUCT USED FOR UNKNOWN INDICATION
     Dosage: 30 MILLILITER
     Route: 048
     Dates: start: 20110422
  18. BENADRYL [Concomitant]
     Indication: PRODUCT USED FOR UNKNOWN INDICATION
     Dosage: 25-50MG
     Route: 048
     Dates: start: 20110422
  19. BENADRYL [Concomitant]
     Dosage: 25-50MG
     Route: 041
     Dates: start: 20110422
  20. PLATELETS [Concomitant]
     Indication: PRODUCT USED FOR UNKNOWN INDICATION
     Dosage: 1 DOSE
     Route: 041
     Dates: start: 20110427
  21. NITROGLYCERINE [Concomitant]
     Indication: PRODUCT USED FOR UNKNOWN INDICATION
     Dosage: UP TO 3 SPRAYS
     Route: 060
     Dates: start: 20110105
  22. IVIG [Concomitant]
     Indication: PRODUCT USED FOR UNKNOWN INDICATION
     Dosage: 1 DOSE
     Route: 041
     Dates: start: 20110427

REACTIONS (6)
  - Myelodysplastic syndrome [Fatal]
  - Sepsis [Fatal]
  - Pancytopenia [Not Recovered/Not Resolved]
  - Lung infection [None]
  - Pleural effusion [None]
  - Cardiac failure congestive [None]
